FAERS Safety Report 7452430-1 (Version None)
Quarter: 2011Q2

REPORT INFORMATION
  Report Type: 
  Country: None (occurrence: None)
  Receive Date: 20110502
  Receipt Date: 20100921
  Transmission Date: 20111010
  Serious: No
  Sender: FDA-Public Use
  Company Number: US-ASTRAZENECA-2010SE44510

PATIENT
  Age: 568 Month
  Sex: Male
  Weight: 79.4 kg

DRUGS (3)
  1. ASPIRIN [Concomitant]
  2. NEXIUM [Suspect]
     Indication: GASTROOESOPHAGEAL REFLUX DISEASE
     Route: 048
     Dates: start: 20100911
  3. CLARITIN [Concomitant]

REACTIONS (4)
  - URTICARIA [None]
  - RASH [None]
  - PAIN IN EXTREMITY [None]
  - OROPHARYNGEAL PAIN [None]
